FAERS Safety Report 7933119-9 (Version None)
Quarter: 2011Q4

REPORT INFORMATION
  Report Type: 
  Country: None (occurrence: None)
  Receive Date: 20111122
  Receipt Date: 20110825
  Transmission Date: 20120403
  Serious: No
  Sender: FDA-Public Use
  Company Number: US-BAYER-2011-082483

PATIENT
  Sex: Female

DRUGS (2)
  1. ALEVE (CAPLET) [Suspect]
     Dosage: 3 DF, UNK
     Route: 048
  2. HYDROCODONE BITARTRATE [Suspect]

REACTIONS (1)
  - SOMNOLENCE [None]
